FAERS Safety Report 20044888 (Version 3)
Quarter: 2021Q4

REPORT INFORMATION
  Report Type: Spontaneous
  Country: JP (occurrence: JP)
  Receive Date: 20211108
  Receipt Date: 20211215
  Transmission Date: 20220304
  Serious: Yes (Death)
  Sender: FDA-Public Use
  Company Number: JP-002147023-NVSJ2021JP018134

PATIENT

DRUGS (1)
  1. RUXOLITINIB [Suspect]
     Active Substance: RUXOLITINIB
     Indication: Polycythaemia vera
     Dosage: IT WAS UNKNOWN WHETHER IT WAS 5 MG BID OR 10 MG BID
     Route: 048
     Dates: start: 20181121

REACTIONS (1)
  - Cardiac failure [Fatal]
